FAERS Safety Report 13664179 (Version 1)
Quarter: 2017Q2

REPORT INFORMATION
  Report Type: Spontaneous
  Country: RU (occurrence: RU)
  Receive Date: 20170619
  Receipt Date: 20170619
  Transmission Date: 20170830
  Serious: Yes (Other)
  Sender: FDA-Public Use
  Company Number: RU-PFIZER INC-2017260642

PATIENT
  Age: 49 Year
  Sex: Male

DRUGS (4)
  1. NIVOLUMAB [Concomitant]
     Active Substance: NIVOLUMAB
     Indication: NON-SMALL CELL LUNG CANCER
     Dosage: 3 MG/KG, CYCLIC (ONCE EVERY TWO WEEKS)
  2. METHYLPREDNISOLONE. [Suspect]
     Active Substance: METHYLPREDNISOLONE
     Dosage: 2 MG/KG, UNK (190 MG)
  3. METHYLPREDNISOLONE. [Suspect]
     Active Substance: METHYLPREDNISOLONE
     Indication: TRANSAMINASES INCREASED
     Dosage: 2 MG/KG, UNK (190 MG)
  4. METHYLPREDNISOLONE. [Suspect]
     Active Substance: METHYLPREDNISOLONE
     Dosage: UNK (DOSE REDUCED)

REACTIONS (5)
  - Hypertension [Unknown]
  - Ventricular arrhythmia [Unknown]
  - Weight increased [Unknown]
  - Cushingoid [Unknown]
  - Depression [Unknown]
